FAERS Safety Report 9649079 (Version 1)
Quarter: 2013Q4

REPORT INFORMATION
  Report Type: Spontaneous
  Country: US (occurrence: US)
  Receive Date: 20131028
  Receipt Date: 20131028
  Transmission Date: 20140711
  Serious: Yes (Other)
  Sender: FDA-Public Use
  Company Number: CHPA2013US015787

PATIENT
  Age: 83 Year
  Sex: Male

DRUGS (8)
  1. GAS-X ULTRA STRENGTH [Suspect]
     Indication: INSOMNIA
     Dosage: 1-2 DF, UNK
     Route: 048
  2. GAS-X ULTRA STRENGTH [Suspect]
     Indication: INITIAL INSOMNIA
  3. GAS-X ULTRA STRENGTH [Suspect]
     Indication: OFF LABEL USE
  4. GAS-X ULTRA STRENGTH [Suspect]
     Indication: FLATULENCE
  5. ANTICOAGULANTS [Concomitant]
  6. VITAMINS [Concomitant]
  7. GLUCOSAMINE [Concomitant]
  8. CHONDROITIN [Concomitant]

REACTIONS (11)
  - Cerebrovascular accident [Not Recovered/Not Resolved]
  - Visual impairment [Not Recovered/Not Resolved]
  - Feeling drunk [Not Recovered/Not Resolved]
  - Insomnia [Unknown]
  - Flatulence [Unknown]
  - Disease recurrence [Unknown]
  - Initial insomnia [Unknown]
  - Activities of daily living impaired [Unknown]
  - Therapeutic response unexpected [Unknown]
  - Wrong technique in drug usage process [Unknown]
  - Inappropriate schedule of drug administration [Unknown]
